FAERS Safety Report 8136355-4 (Version None)
Quarter: 2012Q1

REPORT INFORMATION
  Report Type: 
  Country: None (occurrence: None)
  Receive Date: 20120214
  Receipt Date: 20120203
  Transmission Date: 20120608
  Serious: Yes (Hospitalization, Other)
  Sender: FDA-Public Use
  Company Number: US-BAXTER-2012BH002097

PATIENT
  Age: 54 Year
  Sex: Male

DRUGS (1)
  1. DIANEAL [Suspect]
     Indication: PERITONEAL DIALYSIS
     Route: 033
     Dates: start: 20110725

REACTIONS (5)
  - STAPHYLOCOCCAL SEPSIS [None]
  - PRURITUS [None]
  - REACTIVE PERFORATING COLLAGENOSIS [None]
  - INJECTION SITE EXTRAVASATION [None]
  - CELLULITIS [None]
